FAERS Safety Report 10208754 (Version 2)
Quarter: 2014Q2

REPORT INFORMATION
  Report Type: Report from Study
  Country: US (occurrence: US)
  Receive Date: 20140530
  Receipt Date: 20140530
  Transmission Date: 20141212
  Serious: Yes (Hospitalization, Other)
  Sender: FDA-Public Use
  Company Number: US-ABBVIE-14P-163-1232815-00

PATIENT
  Age: 53 Year
  Sex: Male
  Weight: 118.5 kg

DRUGS (2)
  1. LUPRON DEPOT [Suspect]
     Indication: PROSTATE CANCER
     Route: 030
     Dates: start: 20140116, end: 20140116
  2. ORTERONEL [Concomitant]
     Indication: PROSTATE CANCER
     Route: 048
     Dates: start: 20140206, end: 20140419

REACTIONS (4)
  - Pancreatitis [Recovering/Resolving]
  - Lipase increased [Recovering/Resolving]
  - Pruritus [Not Recovered/Not Resolved]
  - Fatigue [Recovering/Resolving]
